FAERS Safety Report 8987117 (Version 1)
Quarter: 2012Q4

REPORT INFORMATION
  Report Type: 
  Country: FR (occurrence: FR)
  Receive Date: 20121227
  Receipt Date: 20121227
  Transmission Date: 20130627
  Serious: Yes (Hospitalization, Other)
  Sender: FDA-Public Use
  Company Number: PHHY2012FR118971

PATIENT
  Age: 63 Year
  Sex: Male

DRUGS (4)
  1. GLIVEC [Suspect]
     Indication: CHRONIC MYELOID LEUKAEMIA
     Route: 048
     Dates: start: 2006, end: 201210
  2. FLECAINE [Concomitant]
     Dosage: 100 mg, UNK
  3. DICETEL [Concomitant]
  4. PARACETAMOL [Concomitant]

REACTIONS (12)
  - Atelectasis [Unknown]
  - Emphysema [Unknown]
  - Pleurisy [Unknown]
  - Eosinophilic pneumonia [Recovering/Resolving]
  - Pneumonia pneumococcal [Unknown]
  - Pyrexia [Unknown]
  - Respiratory disorder [Unknown]
  - Abdominal pain [Unknown]
  - Fatigue [Unknown]
  - Pleural effusion [Unknown]
  - Eosinophilia [Unknown]
  - Pericardial effusion [Unknown]
